FAERS Safety Report 6187794-2 (Version None)
Quarter: 2009Q2

REPORT INFORMATION
  Report Type: 
  Country: None (occurrence: None)
  Receive Date: 20090513
  Receipt Date: 20090430
  Transmission Date: 20091009
  Serious: Yes (Hospitalization)
  Sender: FDA-Public Use
  Company Number: US-RANBAXY-2009RR-23834

PATIENT
  Age: 86 Year
  Sex: Female

DRUGS (2)
  1. LISINOPRIL [Suspect]
     Indication: HYPERTENSION
     Dosage: 20 MG, QD
     Route: 048
  2. BACTRIM [Suspect]
     Indication: CELLULITIS
     Dosage: UNK
     Route: 048

REACTIONS (2)
  - HYPERKALAEMIA [None]
  - VENTRICULAR ARRHYTHMIA [None]
